FAERS Safety Report 9024614 (Version 1)
Quarter: 2013Q1

REPORT INFORMATION
  Report Type: Spontaneous
  Country: US (occurrence: US)
  Receive Date: 20130121
  Receipt Date: 20130121
  Transmission Date: 20140127
  Serious: Yes (Hospitalization)
  Sender: FDA-Public Use
  Company Number: US-BRISTOL-MYERS SQUIBB COMPANY-17280710

PATIENT
  Age: 49 Year
  Sex: Male

DRUGS (1)
  1. ABILIFY [Suspect]
     Dosage: 15MG AND INCREASED TO 30MG

REACTIONS (1)
  - Mania [Unknown]
